FAERS Safety Report 25619776 (Version 1)
Quarter: 2025Q3

REPORT INFORMATION
  Report Type: Report from Study
  Country: US (occurrence: US)
  Receive Date: 20250729
  Receipt Date: 20250729
  Transmission Date: 20251020
  Serious: Yes (Other)
  Sender: ABBVIE
  Company Number: US-ABBVIE-6389144

PATIENT
  Age: 63 Year
  Sex: Male

DRUGS (1)
  1. IMBRUVICA [Suspect]
     Active Substance: IBRUTINIB
     Indication: Waldenstrom^s macroglobulinaemia
     Route: 048
     Dates: start: 20200101

REACTIONS (8)
  - Loss of consciousness [Unknown]
  - Nephrolithiasis [Unknown]
  - Diarrhoea [Unknown]
  - Headache [Not Recovered/Not Resolved]
  - Rash [Unknown]
  - Pollakiuria [Unknown]
  - Dizziness [Unknown]
  - Sweat discolouration [Unknown]

NARRATIVE: CASE EVENT DATE: 20200101
